FAERS Safety Report 13304493 (Version 2)
Quarter: 2017Q1

REPORT INFORMATION
  Report Type: Report from Study
  Country: JP (occurrence: JP)
  Receive Date: 20170308
  Receipt Date: 20170316
  Transmission Date: 20170428
  Serious: Yes (Hospitalization)
  Sender: FDA-Public Use
  Company Number: JP-CONCORDIA PHARMACEUTICALS INC.-E2B_00008057

PATIENT
  Age: 88 Year
  Sex: Male

DRUGS (13)
  1. ZONISAMIDE. [Suspect]
     Active Substance: ZONISAMIDE
     Indication: PARKINSONISM
     Dosage: 25MG/DAY, 50MG/DAY OR PLACEBO
     Route: 048
     Dates: start: 20161015, end: 20170105
  2. BAYASPIRIN [Concomitant]
     Active Substance: ASPIRIN
  3. PRAVASTATIN. [Concomitant]
     Active Substance: PRAVASTATIN
  4. ZONISAMIDE. [Suspect]
     Active Substance: ZONISAMIDE
     Indication: DEMENTIA WITH LEWY BODIES
     Route: 048
     Dates: start: 20170106, end: 20170228
  5. RINDERON VG [Concomitant]
     Active Substance: BETAMETHASONE VALERATE\GENTAMICIN SULFATE
  6. MOHRUS TAPE [Concomitant]
     Active Substance: KETOPROFEN
  7. ZYLORIC [Concomitant]
     Active Substance: ALLOPURINOL
  8. JU-KAMA [Concomitant]
     Active Substance: MAGNESIUM OXIDE
  9. MADOPAR [Concomitant]
     Active Substance: BENSERAZIDE HYDROCHLORIDE\LEVODOPA
  10. ZOLPIDEM TARTRATE. [Concomitant]
     Active Substance: ZOLPIDEM TARTRATE
  11. ARICEPT [Concomitant]
     Active Substance: DONEPEZIL HYDROCHLORIDE
  12. GASTER [Concomitant]
     Active Substance: FAMOTIDINE
  13. SENNOSIDE [Concomitant]
     Active Substance: SENNOSIDES

REACTIONS (2)
  - Subdural haematoma [Recovering/Resolving]
  - Pneumonia aspiration [Not Recovered/Not Resolved]

NARRATIVE: CASE EVENT DATE: 20170228
